FAERS Safety Report 6258393-9 (Version None)
Quarter: 2009Q3

REPORT INFORMATION
  Report Type: 
  Country: None (occurrence: None)
  Receive Date: 20090702
  Receipt Date: 20090618
  Transmission Date: 20100115
  Serious: Yes (Other)
  Sender: FDA-Public Use
  Company Number: MC200900198

PATIENT
  Age: 77 Year
  Sex: Female
  Weight: 59.1 kg

DRUGS (9)
  1. ANGIOMAX [Suspect]
     Indication: ANGIOPLASTY
     Dosage: 0.75 MG/KG, BOLUS, INTRAVENOUS, 1.75 MG/KG, HR, INTRAVENOUS
     Route: 042
     Dates: start: 20090521, end: 20090521
  2. ANGIOMAX [Suspect]
     Indication: ANGIOPLASTY
     Dosage: 0.75 MG/KG, BOLUS, INTRAVENOUS, 1.75 MG/KG, HR, INTRAVENOUS
     Route: 042
     Dates: start: 20090521, end: 20090521
  3. IMDUR [Concomitant]
  4. MECLIZINE [Concomitant]
  5. INSULIN (INSULIN) [Concomitant]
  6. GLIPIZIDE [Concomitant]
  7. COREG [Concomitant]
  8. ZETIA [Concomitant]
  9. COLACE (DOCUSATE SODIUM) [Concomitant]

REACTIONS (1)
  - VESSEL PERFORATION [None]
